FAERS Safety Report 9072763 (Version 1)
Quarter: 2013Q1

REPORT INFORMATION
  Report Type: Report from Study
  Country: US (occurrence: US)
  Receive Date: 20130128
  Receipt Date: 20130128
  Transmission Date: 20140127
  Serious: No
  Sender: FDA-Public Use
  Company Number: US-ABBOTT-12P-163-0916027-00

PATIENT
  Sex: Male
  Weight: 88.53 kg

DRUGS (4)
  1. HUMIRA 40 MG/0.8 ML PEN [Suspect]
     Indication: PSORIASIS
     Dates: start: 201111
  2. LEXAPRO [Concomitant]
     Indication: DEPRESSION
  3. TACLONEX [Concomitant]
     Indication: PSORIASIS
     Route: 061
  4. TRIAMCINOLONE [Concomitant]
     Indication: PSORIASIS

REACTIONS (1)
  - Rash [Not Recovered/Not Resolved]
